FAERS Safety Report 8541361-1 (Version None)
Quarter: 2012Q3

REPORT INFORMATION
  Report Type: 
  Country: None (occurrence: None)
  Receive Date: 20120716
  Receipt Date: 20120706
  Transmission Date: 20120928
  Serious: Yes (Hospitalization)
  Sender: FDA-Public Use
  Company Number: 2012MA008543

PATIENT
  Age: 64 Year
  Sex: Male

DRUGS (3)
  1. NAPROXEN [Suspect]
     Indication: OSTEOARTHRITIS
     Dosage: 500 MG, BID, PO
     Route: 048
     Dates: end: 20120603
  2. SIMVASTATIN [Concomitant]
  3. TAMSULOSIN HCL [Concomitant]

REACTIONS (3)
  - GASTROINTESTINAL HAEMORRHAGE [None]
  - ANGINA PECTORIS [None]
  - ANAEMIA [None]
